FAERS Safety Report 10086752 (Version 3)
Quarter: 2014Q3

REPORT INFORMATION
  Report Type: Spontaneous
  Country: BR (occurrence: BR)
  Receive Date: 20140418
  Receipt Date: 20140710
  Transmission Date: 20150326
  Serious: Yes (Hospitalization, Disabling)
  Sender: FDA-Public Use
  Company Number: BR-PFIZER INC-2014108472

PATIENT
  Age: 64 Year
  Sex: Male

DRUGS (9)
  1. LOSARTAN POTASSIUM. [Concomitant]
     Active Substance: LOSARTAN POTASSIUM
     Indication: HYPERTENSION
     Dosage: UNK
     Route: 048
     Dates: start: 2010
  2. INSULIN [Concomitant]
     Active Substance: INSULIN NOS
     Indication: DIABETES MELLITUS
     Dosage: UNK
     Route: 058
  3. ROSUVASTATIN [Suspect]
     Active Substance: ROSUVASTATIN
     Indication: BLOOD CHOLESTEROL INCREASED
     Dosage: UNK, DAILY
     Route: 048
     Dates: start: 20130820
  4. ATENOLOL. [Suspect]
     Active Substance: ATENOLOL
     Indication: ARRHYTHMIA
     Dosage: 50 MG QAM (EVERY MORNING)
     Route: 048
     Dates: start: 2010
  5. MONOCORDIL [Concomitant]
     Active Substance: ISOSORBIDE MONONITRATE
     Dosage: UNK
     Route: 048
  6. METFORMIN HCL [Suspect]
     Active Substance: METFORMIN HYDROCHLORIDE
     Indication: DIABETES MELLITUS
     Dosage: UNK
     Route: 048
  7. BRILINTA [Suspect]
     Active Substance: TICAGRELOR
     Dosage: 90 MG, 2X/DAY
     Route: 048
     Dates: start: 20130820
  8. ASPIRINA [Concomitant]
     Active Substance: ASPIRIN
     Dosage: UNK
     Route: 048
  9. ATENOLOL. [Suspect]
     Active Substance: ATENOLOL
     Dosage: 25 MG, HS (AT BEDTIME)
     Route: 048
     Dates: start: 2010

REACTIONS (7)
  - Off label use [Not Recovered/Not Resolved]
  - Diabetic eye disease [Recovered/Resolved]
  - Diabetic foot [Recovered/Resolved with Sequelae]
  - Cerebrovascular accident [Recovered/Resolved]
  - Coronary artery occlusion [Recovered/Resolved]
  - Chest pain [Recovering/Resolving]
  - Blindness [Not Recovered/Not Resolved]

NARRATIVE: CASE EVENT DATE: 2006
